FAERS Safety Report 6040744-1 (Version None)
Quarter: 2009Q1

REPORT INFORMATION
  Report Type: 
  Country: None (occurrence: None)
  Receive Date: 20090116
  Receipt Date: 20080516
  Transmission Date: 20090719
  Serious: No
  Sender: FDA-Public Use
  Company Number: US-BRISTOL-MYERS SQUIBB COMPANY-14195309

PATIENT
  Age: 55 Year
  Sex: Female
  Weight: 68 kg

DRUGS (2)
  1. ABILIFY [Suspect]
     Indication: MAJOR DEPRESSION
     Dosage: DOSE INCREASED TO 20MG QD IN JAN08 AND LATER STOPPED ON MAR08
     Dates: start: 20071201, end: 20080301
  2. LIPITOR [Concomitant]

REACTIONS (3)
  - DYSKINESIA [None]
  - MUSCLE SPASMS [None]
  - PARAESTHESIA [None]
